FAERS Safety Report 19573015 (Version 2)
Quarter: 2021Q3

REPORT INFORMATION
  Report Type: Report from Study
  Country: TR (occurrence: TR)
  Receive Date: 20210716
  Receipt Date: 20210722
  Transmission Date: 20211014
  Serious: Yes (Disabling)
  Sender: FDA-Public Use
  Company Number: TR-REGENERON PHARMACEUTICALS, INC.-2021-64082

PATIENT

DRUGS (42)
  1. HEPATITIS B VACCINE (RDNA) [Concomitant]
     Indication: HEPATITIS B IMMUNISATION
     Dosage: 1 ML, SINGLE
     Route: 030
     Dates: start: 20210428, end: 20210428
  2. VIGAMOX [Concomitant]
     Active Substance: MOXIFLOXACIN HYDROCHLORIDE
     Dosage: 1 DF, UNK
     Route: 047
     Dates: start: 20210608, end: 20210622
  3. DEVIT 3 [Concomitant]
     Active Substance: CHOLECALCIFEROL
     Dosage: 3 DF, UNK
     Route: 048
     Dates: start: 20210609, end: 20210629
  4. ONADRON                            /00016001/ [Concomitant]
     Indication: PROPHYLAXIS
     Dosage: 1 DROP, QID
     Route: 047
     Dates: start: 20210521, end: 20210527
  5. FERRUM                             /00023501/ [Concomitant]
     Dosage: 5 DF, UNK
     Route: 048
     Dates: start: 20210615, end: 20210628
  6. FERRUM                             /00023501/ [Concomitant]
     Dosage: 5 DF, UNK
     Route: 048
     Dates: start: 20210630
  7. TROPAMID [Concomitant]
     Active Substance: TROPICAMIDE
     Indication: PROPHYLAXIS
     Dosage: 1 DROP BID
     Route: 047
     Dates: start: 20210521, end: 20210527
  8. CALCIUM LACTATE [Concomitant]
     Active Substance: CALCIUM LACTATE
     Indication: INFANTILE APNOEA
     Dosage: 70 MG, QID
     Route: 042
     Dates: start: 20210518, end: 20210524
  9. ZINCO                              /00156501/ [Concomitant]
     Dosage: 2 ML, CONTINUOUS
     Route: 048
     Dates: start: 20210525, end: 20210612
  10. LASER [Suspect]
     Active Substance: DEVICE
     Dosage: RIGHT EYE, SINGLE
     Route: 031
     Dates: start: 20210608, end: 20210608
  11. CAFCIT [Concomitant]
     Active Substance: CAFFEINE CITRATE
     Indication: INFANTILE APNOEA
     Dosage: 5 MG, CONTINUOUS
     Route: 042
     Dates: start: 20210413, end: 20210502
  12. ONADRON                            /00016001/ [Concomitant]
     Dosage: 1 UNK, UNK
     Route: 047
     Dates: start: 20210630
  13. LASER [Suspect]
     Active Substance: DEVICE
     Indication: RETINOPATHY OF PREMATURITY
     Dosage: RIGHT EYE, SINGLE
     Route: 031
     Dates: start: 20210528, end: 20210528
  14. FERRUM                             /00023501/ [Concomitant]
     Dosage: 3 DROPS, CONTINUOUS
     Route: 048
     Dates: start: 20210426, end: 20210524
  15. FORBIOME [Concomitant]
     Indication: PROBIOTIC THERAPY
     Dosage: 6 DROPS, CONTINUOUS
     Route: 048
     Dates: start: 20210406, end: 20210518
  16. NETIRA [Concomitant]
     Indication: CONJUNCTIVITIS BACTERIAL
     Dosage: 0.05 ML, TID
     Route: 047
     Dates: start: 20210430, end: 20210501
  17. ANHYDROUS PHOSPHATE (JOULIE^S) ORAL SOLUTION [Concomitant]
     Dosage: 1 ML, OTHER
     Route: 042
     Dates: start: 20210524, end: 20210605
  18. PULMICORT TURBUHALER [Concomitant]
     Active Substance: BUDESONIDE
     Indication: CHRONIC RESPIRATORY DISEASE
  19. ZINCO                              /00156501/ [Concomitant]
     Dosage: 3 ML, UNK
     Route: 048
     Dates: start: 20210630
  20. EYLEA [Suspect]
     Active Substance: AFLIBERCEPT
     Indication: RETINOPATHY OF PREMATURITY
     Dosage: 0.4 MG, SINGLE, BOTH EYES (OU)
     Route: 031
     Dates: start: 20210520, end: 20210520
  21. FERRUM                             /00023501/ [Concomitant]
     Indication: ANAEMIA
     Dosage: 2 DROPS, CONTINUOUS
     Route: 048
     Dates: start: 20210414, end: 20210424
  22. CAFCIT [Concomitant]
     Active Substance: CAFFEINE CITRATE
     Dosage: 2.5 MG, CONTINUOUS
     Route: 042
     Dates: start: 20210503, end: 20210504
  23. BERKO ZINCO [Concomitant]
     Indication: PROBIOTIC THERAPY
     Dosage: 5 DF, QID
     Route: 048
     Dates: start: 20210419, end: 20210518
  24. VIGAMOX [Concomitant]
     Active Substance: MOXIFLOXACIN HYDROCHLORIDE
     Indication: ANTIBIOTIC PROPHYLAXIS
     Dosage: 1 DROP, QID
     Route: 047
     Dates: start: 20210521, end: 20210527
  25. VIGAMOX [Concomitant]
     Active Substance: MOXIFLOXACIN HYDROCHLORIDE
     Dosage: 1 DF, QD
     Route: 047
     Dates: start: 20210529, end: 20210607
  26. VIGAMOX [Concomitant]
     Active Substance: MOXIFLOXACIN HYDROCHLORIDE
     Dosage: 1 DF, QD
     Route: 047
     Dates: start: 20210630
  27. ANHYDROUS PHOSPHATE (JOULIE^S) ORAL SOLUTION [Concomitant]
     Indication: OSTEOPENIA
     Dosage: 0.5 ML, BID
     Route: 042
     Dates: start: 20210518, end: 20210523
  28. ONADRON                            /00016001/ [Concomitant]
     Dosage: 1 DF, BID
     Route: 047
     Dates: start: 20210601, end: 20210622
  29. TROPAMID [Concomitant]
     Active Substance: TROPICAMIDE
     Dosage: 1 DF, TID
     Route: 047
     Dates: start: 20210630
  30. CALCIUM LACTATE [Concomitant]
     Active Substance: CALCIUM LACTATE
     Indication: OSTEOPENIA
     Dosage: 70 MG, OTHER
     Route: 042
     Dates: start: 20210525, end: 20210606
  31. PULMICORT TURBUHALER [Concomitant]
     Active Substance: BUDESONIDE
     Indication: BRONCHOPULMONARY DYSPLASIA
     Dosage: 0.125 ?G, BID
     Route: 055
     Dates: start: 20210524, end: 20210601
  32. FOLBIOL [Concomitant]
     Active Substance: FOLIC ACID
     Indication: SUPPLEMENTATION THERAPY
     Dosage: 50 ?G, CONTINUOUS
     Route: 042
     Dates: start: 20210525, end: 20210622
  33. ACD3 [Concomitant]
     Indication: VITAMIN SUPPLEMENTATION
     Dosage: 1 ML, CONTINUOUS
     Route: 048
     Dates: start: 20210409, end: 20210518
  34. TERRAMYCIN                         /00029701/ [Concomitant]
     Indication: CONJUNCTIVITIS BACTERIAL
     Dosage: 1 UNKNOWN, CONTINUOUS
     Route: 061
     Dates: start: 20210419, end: 20210504
  35. TROPAMID [Concomitant]
     Active Substance: TROPICAMIDE
     Indication: PUPIL DILATION PROCEDURE
     Dosage: 0.05 ML, OTHER
     Route: 047
     Dates: start: 20210501, end: 20210501
  36. VIGAMOX [Concomitant]
     Active Substance: MOXIFLOXACIN HYDROCHLORIDE
     Indication: CONJUNCTIVITIS
     Dosage: 0.05 ML, TID
     Route: 047
     Dates: start: 20210502, end: 20210515
  37. DEVIT 3 [Concomitant]
     Active Substance: CHOLECALCIFEROL
     Indication: SUPPLEMENTATION THERAPY
     Dosage: 3 DROPS, CONTINUOUS
     Route: 048
     Dates: start: 20210519, end: 20210607
  38. ZINCO                              /00156501/ [Concomitant]
     Indication: SUPPLEMENTATION THERAPY
     Dosage: 5 DROPS, QID
     Route: 048
     Dates: start: 20210419, end: 20210518
  39. FERRUM                             /00023501/ [Concomitant]
     Dosage: 5 DROPS, CONTINUOUS
     Route: 048
     Dates: start: 20210525, end: 20210607
  40. MOXAI [Concomitant]
     Indication: CONJUNCTIVITIS BACTERIAL
     Dosage: 0.05 ML, TID
     Route: 047
     Dates: start: 20210501, end: 20210502
  41. DEKSAMET                           /00016001/ [Concomitant]
     Indication: SEPSIS
     Dosage: 0.3 MG, CONTINUOUS
     Route: 042
     Dates: start: 20210505, end: 20210507
  42. ZINCO                              /00156501/ [Concomitant]
     Dosage: 3 ML, UNK
     Route: 048
     Dates: start: 20210613, end: 20210628

REACTIONS (2)
  - Retinal detachment [Recovered/Resolved]
  - Vitreous haemorrhage [Recovering/Resolving]

NARRATIVE: CASE EVENT DATE: 20210527
